FAERS Safety Report 21997660 (Version 1)
Quarter: 2023Q1

REPORT INFORMATION
  Report Type: Spontaneous
  Country: US (occurrence: US)
  Receive Date: 20230216
  Receipt Date: 20230216
  Transmission Date: 20230417
  Serious: Yes (Other)
  Sender: FDA-Public Use
  Company Number: US-CELLTRION INC.-2023US003107

PATIENT

DRUGS (1)
  1. TRUXIMA [Suspect]
     Active Substance: RITUXIMAB-ABBS
     Indication: Product used for unknown indication
     Dosage: 375 MG/ME FROM 6 WEEKS AGO UNTIL ABOUT 2 WEEKS AGO (RECEIVED 4 COURSES)

REACTIONS (6)
  - Hypokalaemia [Unknown]
  - Hypophosphataemia [Unknown]
  - Hypomagnesaemia [Unknown]
  - Electrolyte imbalance [Unknown]
  - Hypocalcaemia [Unknown]
  - Unevaluable event [Unknown]
